FAERS Safety Report 16458991 (Version 1)
Quarter: 2019Q2

REPORT INFORMATION
  Report Type: Spontaneous
  Country: US (occurrence: US)
  Receive Date: 20190620
  Receipt Date: 20190620
  Transmission Date: 20190711
  Serious: No
  Sender: FDA-Public Use
  Company Number: US-THERAPEUTICSMD-2019TMD01115

PATIENT
  Sex: Female
  Weight: 46.71 kg

DRUGS (4)
  1. IMVEXXY [Suspect]
     Active Substance: ESTRADIOL
     Indication: HOT FLUSH
  2. IMVEXXY [Suspect]
     Active Substance: ESTRADIOL
     Indication: VULVOVAGINAL DRYNESS
     Dosage: BEFORE BED
     Route: 067
     Dates: start: 201902, end: 2019
  3. IMVEXXY [Suspect]
     Active Substance: ESTRADIOL
     Indication: HOT FLUSH
  4. IMVEXXY [Suspect]
     Active Substance: ESTRADIOL
     Indication: VULVOVAGINAL DRYNESS
     Dosage: 4 ?G, 2X/WEEK BEFORE BED ON SUNDAYS AND WEDNESDAYS
     Route: 067
     Dates: start: 2019, end: 20190522

REACTIONS (3)
  - Rash [Recovered/Resolved]
  - Off label use [Recovered/Resolved]
  - Headache [Recovered/Resolved]

NARRATIVE: CASE EVENT DATE: 2019
